FAERS Safety Report 7978115-0 (Version None)
Quarter: 2011Q4

REPORT INFORMATION
  Report Type: 
  Country: None (occurrence: None)
  Receive Date: 20111209
  Receipt Date: 20111103
  Transmission Date: 20120403
  Serious: Yes (Hospitalization)
  Sender: FDA-Public Use
  Company Number: 2011SP051746

PATIENT
  Age: 50 Year
  Sex: Female
  Weight: 73 kg

DRUGS (4)
  1. REBETOL [Suspect]
     Indication: HEPATITIS C
     Dosage: 1000 MG; QD
     Dates: start: 20111001
  2. PEG-INTRON [Suspect]
     Indication: HEPATITIS C
     Dosage: 100 MCG; QW; SC
     Route: 058
     Dates: start: 20111001
  3. VICTRELIS [Concomitant]
  4. RAMIPRIL [Concomitant]

REACTIONS (2)
  - CALCULUS BLADDER [None]
  - POST PROCEDURAL HAEMORRHAGE [None]
